FAERS Safety Report 18711172 (Version 1)
Quarter: 2021Q1

REPORT INFORMATION
  Report Type: Spontaneous
  Country: US (occurrence: US)
  Receive Date: 20210107
  Receipt Date: 20210107
  Transmission Date: 20210419
  Serious: No
  Sender: FDA-Public Use
  Company Number: US-ASTRAZENECA-2020SF66203

PATIENT
  Sex: Female
  Weight: 61.2 kg

DRUGS (1)
  1. IMFINZI [Suspect]
     Active Substance: DURVALUMAB
     Dosage: 500MG/10ML SINGLE?DOSE VIAL
     Route: 042

REACTIONS (3)
  - Product physical issue [Unknown]
  - Accidental exposure to product [Unknown]
  - Headache [Unknown]
